FAERS Safety Report 5664366-7 (Version None)
Quarter: 2008Q1

REPORT INFORMATION
  Report Type: 
  Country: None (occurrence: None)
  Receive Date: 20080312
  Receipt Date: 20080304
  Transmission Date: 20080703
  Serious: No
  Sender: FDA-Public Use
  Company Number: 002#2#2008-00089

PATIENT
  Age: 78 Year
  Sex: Male
  Weight: 61.2356 kg

DRUGS (6)
  1. NEUPRO [Suspect]
     Indication: PARKINSON'S DISEASE
     Dosage: 2MG/24H,1 IN 1 D,TRANSDERMAL;  4MG/24H,1 IN 1 D,TRANSDERMAL
     Route: 062
     Dates: start: 20071101, end: 20071201
  2. NEUPRO [Suspect]
     Indication: PARKINSON'S DISEASE
     Dosage: 2MG/24H,1 IN 1 D,TRANSDERMAL;  4MG/24H,1 IN 1 D,TRANSDERMAL
     Route: 062
     Dates: start: 20071201
  3. CARBIDOPA AND LEVODOPA [Concomitant]
  4. MIDRODINE [Concomitant]
  5. LEVODOPA-CARBIDOPA CR [Concomitant]
  6. AMITRIPTYLINE HCL [Concomitant]

REACTIONS (4)
  - APPLICATION SITE ERYTHEMA [None]
  - APPLICATION SITE IRRITATION [None]
  - APPLICATION SITE PRURITUS [None]
  - PHARMACEUTICAL PRODUCT COMPLAINT [None]
